FAERS Safety Report 11801980 (Version 3)
Quarter: 2017Q2

REPORT INFORMATION
  Report Type: Spontaneous
  Country: JP (occurrence: JP)
  Receive Date: 20151204
  Receipt Date: 20170628
  Transmission Date: 20170829
  Serious: Yes (Death, Hospitalization, Other)
  Sender: FDA-Public Use
  Company Number: JP-MYLANLABS-2015M1041383

PATIENT

DRUGS (9)
  1. FLUCONAZOLE. [Suspect]
     Active Substance: FLUCONAZOLE
     Indication: CELLULITIS
     Dosage: 200 MG, QD
     Route: 065
  2. PREDNISOLONE. [Suspect]
     Active Substance: PREDNISOLONE
     Indication: BEHCET^S SYNDROME
     Dosage: 10 MG, QD
     Route: 048
  3. FLUCYTOSINE. [Suspect]
     Active Substance: FLUCYTOSINE
     Indication: DISSEMINATED CRYPTOCOCCOSIS
     Dosage: 25 MG/KG, QD
     Route: 065
  4. FLUCONAZOLE. [Suspect]
     Active Substance: FLUCONAZOLE
     Indication: ENTEROCOCCAL SEPSIS
     Dosage: 100 MG, QD
     Route: 065
  5. CEFAZOLIN [Suspect]
     Active Substance: CEFAZOLIN
     Indication: CELLULITIS
     Route: 041
  6. AMPHOTERICIN B. [Suspect]
     Active Substance: AMPHOTERICIN B
     Indication: FUNGAEMIA
  7. PREDNISOLONE. [Suspect]
     Active Substance: PREDNISOLONE
     Indication: DIABETES MELLITUS
  8. FLUCYTOSINE. [Suspect]
     Active Substance: FLUCYTOSINE
     Indication: FUNGAEMIA
  9. AMPHOTERICIN B. [Suspect]
     Active Substance: AMPHOTERICIN B
     Indication: DISSEMINATED CRYPTOCOCCOSIS
     Dosage: 3.5 MG/KG, QD
     Route: 065

REACTIONS (10)
  - Renal impairment [Fatal]
  - Skin necrosis [Unknown]
  - Oedema peripheral [Recovering/Resolving]
  - Skin erosion [Unknown]
  - Enterococcal sepsis [Fatal]
  - Cellulitis [Recovering/Resolving]
  - Disseminated cryptococcosis [Unknown]
  - Cellulitis [Unknown]
  - General physical health deterioration [Fatal]
  - Fungaemia [Unknown]

NARRATIVE: CASE EVENT DATE: 201505
